FAERS Safety Report 21772234 (Version 3)
Quarter: 2023Q2

REPORT INFORMATION
  Report Type: Spontaneous
  Country: US (occurrence: US)
  Receive Date: 20221223
  Receipt Date: 20230628
  Transmission Date: 20230721
  Serious: Yes (Other)
  Sender: FDA-Public Use
  Company Number: US-CTI BIOPHARMA-2022US03204

PATIENT

DRUGS (7)
  1. VONJO [Suspect]
     Active Substance: PACRITINIB
     Indication: Essential thrombocythaemia
     Dosage: 200 MG, BID
     Route: 048
     Dates: start: 20221025
  2. LASIX [Concomitant]
     Active Substance: FUROSEMIDE
  3. ENTRESTO [Concomitant]
     Active Substance: SACUBITRIL\VALSARTAN
  4. CARVEDILOL [Concomitant]
     Active Substance: CARVEDILOL
  5. INSPRA [Concomitant]
     Active Substance: EPLERENONE
  6. JARDIANCE [Concomitant]
     Active Substance: EMPAGLIFLOZIN
  7. PREDNISONE [Concomitant]
     Active Substance: PREDNISONE

REACTIONS (20)
  - Cardiac failure [Unknown]
  - Fatigue [Unknown]
  - Headache [Unknown]
  - Feeling abnormal [Unknown]
  - Pain [Unknown]
  - Arthralgia [Unknown]
  - Eating disorder [Unknown]
  - Weight decreased [Unknown]
  - Hypotension [Unknown]
  - Peripheral coldness [Unknown]
  - Arthropathy [Unknown]
  - Dry mouth [Unknown]
  - Pain in extremity [Unknown]
  - Product dose omission issue [Unknown]
  - Norovirus infection [Unknown]
  - Skin exfoliation [Unknown]
  - Platelet count decreased [Unknown]
  - Haemoglobin decreased [Unknown]
  - Haematocrit decreased [Unknown]
  - Cough [Unknown]
